FAERS Safety Report 8954760 (Version 1)
Quarter: 2012Q4

REPORT INFORMATION
  Report Type: 
  Country: US (occurrence: US)
  Receive Date: 20121210
  Receipt Date: 20121210
  Transmission Date: 20130627
  Serious: Yes (Hospitalization)
  Sender: FDA-Public Use
  Company Number: PHEH2012US023792

PATIENT
  Sex: Female

DRUGS (2)
  1. TEGRETOL [Suspect]
     Indication: TRIGEMINAL NEURALGIA
     Dosage: UNK UKN, UNK
     Dates: start: 201111
  2. REBIF [Suspect]
     Indication: MULTIPLE SCLEROSIS
     Dosage: 44 ug, (three times per week)

REACTIONS (8)
  - Multiple sclerosis [Unknown]
  - Urinary tract infection [Unknown]
  - Fall [Unknown]
  - Head injury [Unknown]
  - Toxicity to various agents [Recovered/Resolved]
  - Dysstasia [Recovered/Resolved]
  - Malaise [Unknown]
  - Overdose [Unknown]
